FAERS Safety Report 24122778 (Version 1)
Quarter: 2024Q3

REPORT INFORMATION
  Report Type: Spontaneous
  Country: CN (occurrence: CN)
  Receive Date: 20240723
  Receipt Date: 20240723
  Transmission Date: 20241016
  Serious: Yes (Hospitalization)
  Sender: NOVO NORDISK
  Company Number: CN-NOVOPROD-1257984

PATIENT
  Age: 75 Year
  Sex: Male
  Weight: 67 kg

DRUGS (6)
  1. NOVORAPID [Suspect]
     Active Substance: INSULIN ASPART
     Indication: Type 2 diabetes mellitus
     Dosage: 30 IU, QD(10 BEFORE BREAKFAST, 10 BEFORE LUNCH AND 10 BEFORE SUPPER)
  2. NOVORAPID [Suspect]
     Active Substance: INSULIN ASPART
     Dosage: 45 IU, QD(INCREASED TO 15 U IN THE MORNING, 15 U AT NOON AND 15 U IN THE EVENING
  3. NOVORAPID [Suspect]
     Active Substance: INSULIN ASPART
     Dosage: 56 IU, QD(18 U BEFORE LUNCH, 20 U AT NOON AND 18 U IN THE EVENING)
  4. NOVORAPID [Suspect]
     Active Substance: INSULIN ASPART
     Dosage: 36 IU, QD(12 U IN THE MORNING, 12 U AT NOON AND 12 U IN THE EVENING)
  5. LANTUS [Concomitant]
     Active Substance: INSULIN GLARGINE
     Indication: Type 2 diabetes mellitus
     Dosage: 12 IU, QD(10 P.M.)
  6. LANTUS [Concomitant]
     Active Substance: INSULIN GLARGINE
     Dosage: 15 IU, QD(DOSE INCREASED) 10 PM

REACTIONS (2)
  - Myocardial infarction [Unknown]
  - Cardiac discomfort [Unknown]

NARRATIVE: CASE EVENT DATE: 20230101
